FAERS Safety Report 17562122 (Version 1)
Quarter: 2020Q1

REPORT INFORMATION
  Report Type: Spontaneous
  Country: US (occurrence: US)
  Receive Date: 20200319
  Receipt Date: 20200319
  Transmission Date: 20200409
  Serious: Yes (Hospitalization)
  Sender: FDA-Public Use
  Company Number: US-PERRIGO-20US003989

PATIENT
  Age: 84 Year
  Sex: Male
  Weight: 71.2 kg

DRUGS (8)
  1. TOUJEO [Concomitant]
     Active Substance: INSULIN GLARGINE
     Indication: DIABETES MELLITUS
     Dosage: 15 U
     Route: 065
  2. HUMALOG [Concomitant]
     Active Substance: INSULIN LISPRO
     Indication: DIABETES MELLITUS
     Dosage: 4 U
     Route: 065
     Dates: start: 202001, end: 202001
  3. ANTIFUNGALS FOR TOPICAL USE [Suspect]
     Active Substance: UNSPECIFIED INGREDIENT
     Indication: HIDRADENITIS
     Dosage: SMALL AMOUNT, TID
     Route: 061
     Dates: start: 20191217, end: 20200207
  4. BUMETANIDE. [Suspect]
     Active Substance: BUMETANIDE
     Dosage: 1 MG, QD
     Route: 048
     Dates: start: 201909
  5. DOXYCYCLINE. [Concomitant]
     Active Substance: DOXYCYCLINE
     Indication: HIDRADENITIS
     Dosage: UNK, PRN
     Route: 065
     Dates: start: 202001, end: 20200207
  6. GENTAMICIN SULFATE. [Suspect]
     Active Substance: GENTAMICIN SULFATE
     Indication: HIDRADENITIS
     Dosage: SMALL AMOUNT, TID
     Route: 061
     Dates: start: 20191217, end: 20200207
  7. BUMETANIDE. [Suspect]
     Active Substance: BUMETANIDE
     Indication: FLUID RETENTION
     Dosage: 1 MG, QOD
     Route: 048
     Dates: end: 201909
  8. CEFDINIR. [Concomitant]
     Active Substance: CEFDINIR
     Indication: URINARY TRACT INFECTION
     Dosage: UNK
     Route: 065
     Dates: start: 202001, end: 202001

REACTIONS (10)
  - Rash [Recovered/Resolved]
  - Renal failure [Not Recovered/Not Resolved]
  - Toxicity to various agents [Unknown]
  - Muscular weakness [Not Recovered/Not Resolved]
  - Urticaria [Recovered/Resolved]
  - Dyspnoea [Recovering/Resolving]
  - Off label use [Recovered/Resolved]
  - Vertigo [Not Recovered/Not Resolved]
  - Fatigue [Not Recovered/Not Resolved]
  - Drug interaction [Recovered/Resolved]

NARRATIVE: CASE EVENT DATE: 20190911
